FAERS Safety Report 9891232 (Version 3)
Quarter: 2018Q3

REPORT INFORMATION
  Report Type: Report from Study
  Country: IT (occurrence: IT)
  Receive Date: 20140212
  Receipt Date: 20180711
  Transmission Date: 20181010
  Serious: Yes (Other)
  Sender: FDA-Public Use
  Company Number: IT-BAYER-2011-080412

PATIENT
  Age: 73 Year
  Sex: Male
  Weight: 72 kg

DRUGS (9)
  1. TRIASPORIN [Concomitant]
     Active Substance: ITRACONAZOLE
     Indication: STOMATITIS
     Dosage: UNK
     Route: 002
     Dates: start: 20110322, end: 20111005
  2. LOCOIDON [Concomitant]
     Active Substance: HYDROCORTISONE BUTYRATE
     Indication: SKIN TOXICITY
     Dosage: UNK
     Route: 061
     Dates: start: 20110531
  3. REGORAFENIB. [Suspect]
     Active Substance: REGORAFENIB
     Indication: COLORECTAL CANCER
     Dosage: 120 MG, QD
     Route: 048
     Dates: start: 20110913, end: 201204
  4. REGORAFENIB. [Suspect]
     Active Substance: REGORAFENIB
     Indication: COLORECTAL CANCER
     Dosage: 160 MG, QD
     Route: 048
     Dates: start: 20101130, end: 20110826
  5. XENTAFID [Concomitant]
     Indication: STOMATITIS
     Dosage: UNK
     Route: 002
     Dates: start: 20110322, end: 20111005
  6. CALCIUM SANDOZ [CALCIUM GLUCONATE] [Concomitant]
     Indication: PROPHYLAXIS
     Dosage: DAILY DOSE 1000 MG
     Dates: start: 20100311, end: 20111005
  7. PLASIL [Concomitant]
     Active Substance: METOCLOPRAMIDE HYDROCHLORIDE
     Indication: NAUSEA
     Dosage: 10 MG, QD
     Route: 048
     Dates: start: 20110410, end: 20110503
  8. PERIDON [Concomitant]
     Active Substance: DOMPERIDONE
     Indication: NAUSEA
     Dosage: 10 MG, QD
     Route: 048
     Dates: start: 20110531, end: 20110616
  9. CALCIUM?D3 [CALCIUM CARBONATE,COLECALCIFEROL] [Concomitant]
     Indication: HYPOCALCAEMIA
     Dosage: UNK
     Route: 048
     Dates: start: 20110503

REACTIONS (4)
  - Squamous cell carcinoma of skin [Recovered/Resolved]
  - Sarcomatoid carcinoma [Recovered/Resolved]
  - Keratoacanthoma [Recovered/Resolved]
  - Keratoacanthoma [Recovered/Resolved]

NARRATIVE: CASE EVENT DATE: 20110809
